FAERS Safety Report 6581710-7 (Version None)
Quarter: 2010Q1

REPORT INFORMATION
  Report Type: 
  Country: None (occurrence: None)
  Receive Date: 20100215
  Receipt Date: 20100201
  Transmission Date: 20100710
  Serious: Yes (Hospitalization)
  Sender: FDA-Public Use
  Company Number: DE-MYLANLABS-2009S1003480

PATIENT
  Age: 86 Year
  Sex: Male
  Weight: 60 kg

DRUGS (8)
  1. METOPROLOL TARTRATE [Suspect]
     Indication: ATRIAL FIBRILLATION
     Route: 048
     Dates: start: 20070101, end: 20080904
  2. DIGITOXIN [Suspect]
     Indication: ATRIAL FIBRILLATION
     Route: 048
     Dates: start: 20070101, end: 20070904
  3. RIVASTIGMINE TARTRATE [Suspect]
     Indication: DEMENTIA
     Route: 003
     Dates: start: 20070101, end: 20080904
  4. ASS SANDOZ [Concomitant]
     Indication: ISCHAEMIC HEART DISEASE PROPHYLAXIS
     Route: 048
     Dates: start: 20070101, end: 20080910
  5. HYDROCHLOROTHIAZIDE 1A PHARMA [Concomitant]
     Indication: HYPERTENSION
     Route: 048
     Dates: start: 20070101, end: 20080910
  6. PIPAMPERONE [Concomitant]
     Indication: SLEEP DISORDER
     Route: 048
     Dates: start: 20070101, end: 20080910
  7. RAMIPRIL [Concomitant]
     Indication: HYPERTENSION
     Route: 048
     Dates: start: 20070101, end: 20080910
  8. ZOLPIDEM [Concomitant]
     Indication: SLEEP DISORDER
     Route: 048
     Dates: start: 20070101, end: 20080910

REACTIONS (1)
  - BRADYARRHYTHMIA [None]
